FAERS Safety Report 25641430 (Version 1)
Quarter: 2025Q3

REPORT INFORMATION
  Report Type: Spontaneous
  Country: CN (occurrence: CN)
  Receive Date: 20250804
  Receipt Date: 20250804
  Transmission Date: 20251021
  Serious: Yes (Other)
  Sender: B. BRAUN MEDICAL INC.
  Company Number: CN-B. Braun Medical Inc.-CN-BBM-202502999

PATIENT
  Age: 23 Year
  Sex: Male

DRUGS (2)
  1. POTASSIUM CHLORIDE [Suspect]
     Active Substance: POTASSIUM CHLORIDE
     Indication: Intentional overdose
  2. HEPARIN [Suspect]
     Active Substance: HEPARIN SODIUM
     Indication: Haemofiltration

REACTIONS (3)
  - Gastritis erosive [Recovered/Resolved]
  - Haematemesis [Unknown]
  - Intentional overdose [Recovered/Resolved]
